FAERS Safety Report 8906197 (Version 5)
Quarter: 2014Q4

REPORT INFORMATION
  Report Type: Spontaneous
  Country: US (occurrence: None)
  Receive Date: 20121106
  Receipt Date: 20141010
  Transmission Date: 20150529
  Serious: Yes (Other)
  Sender: FDA-Public Use
  Company Number: ADR-2011-11252

PATIENT
  Age: 16 Year
  Sex: Male

DRUGS (1)
  1. LIORESAL [Suspect]
     Active Substance: BACLOFEN
     Indication: MUSCLE SPASTICITY
     Dosage: SEE B5

REACTIONS (25)
  - Mental status changes [None]
  - Device power source issue [None]
  - Hypotonia [None]
  - Hyperhidrosis [None]
  - Overdose [None]
  - Hypervigilance [None]
  - Pruritus [None]
  - Underdose [None]
  - Device leakage [None]
  - Device dislocation [None]
  - Device occlusion [None]
  - Medical device discomfort [None]
  - Therapeutic response decreased [None]
  - Drug withdrawal syndrome [None]
  - Lethargy [None]
  - Dysstasia [None]
  - Device deposit issue [None]
  - Device damage [None]
  - Altered state of consciousness [None]
  - Abasia [None]
  - Clonus [None]
  - Implant site extravasation [None]
  - Muscle spasticity [None]
  - Device connection issue [None]
  - Device issue [None]

NARRATIVE: CASE EVENT DATE: 20110921
